FAERS Safety Report 6338808-8 (Version None)
Quarter: 2009Q3

REPORT INFORMATION
  Report Type: 
  Country: None (occurrence: None)
  Receive Date: 20090903
  Receipt Date: 20081106
  Transmission Date: 20100115
  Serious: No
  Sender: FDA-Public Use
  Company Number: US-KINGPHARMUSA00001-K200801279

PATIENT
  Sex: Male

DRUGS (1)
  1. SONATA [Suspect]

REACTIONS (1)
  - DRUG INEFFECTIVE [None]
